FAERS Safety Report 4861594-5 (Version None)
Quarter: 2005Q4

REPORT INFORMATION
  Report Type: 
  Country: None (occurrence: None)
  Receive Date: 20051216
  Receipt Date: 20051208
  Transmission Date: 20060501
  Serious: Yes (Hospitalization)
  Sender: FDA-Public Use
  Company Number: FR200512001232

PATIENT
  Age: 58 Year
  Sex: Female

DRUGS (5)
  1. PROZAC [Suspect]
     Dosage: ORAL
     Route: 048
     Dates: start: 19960101
  2. GINKOR (GINKGO BILOBA EXTRACT, TROXERUTIN) [Concomitant]
  3. STRESAM (ETIFOXINE) [Concomitant]
  4. INIPOMP (PANTOPRAZOLE) [Concomitant]
  5. CHONDROSULF (CHONDROITIN SULFATE SODIUM) [Concomitant]

REACTIONS (3)
  - CHOLESTASIS [None]
  - GRANULOMATOUS LIVER DISEASE [None]
  - HEPATIC FIBROSIS [None]
